FAERS Safety Report 18482628 (Version 1)
Quarter: 2020Q4

REPORT INFORMATION
  Report Type: Spontaneous
  Country: AU (occurrence: AU)
  Receive Date: 20201110
  Receipt Date: 20201110
  Transmission Date: 20210114
  Serious: Yes (Death, Other)
  Sender: FDA-Public Use
  Company Number: AU-AMGEN-AUSSP2020179471

PATIENT
  Age: 69 Year
  Sex: Female

DRUGS (9)
  1. POSACONAZOLE [Concomitant]
     Active Substance: POSACONAZOLE
     Indication: ANTIFUNGAL PROPHYLAXIS
  2. FILGRASTIM [Suspect]
     Active Substance: FILGRASTIM
     Indication: PROPHYLAXIS
     Dosage: UNK
     Route: 065
  3. XELJANZ [Concomitant]
     Active Substance: TOFACITINIB CITRATE
     Dosage: 5 MILLIGRAM, BID DAY 17 POST-FLAG
  4. FLUDARABINE [Concomitant]
     Active Substance: FLUDARABINE PHOSPHATE
  5. DEXAMETHASONE. [Concomitant]
     Active Substance: DEXAMETHASONE
     Dosage: 40 MILLIGRAM, QWK
  6. AZACITIDINE. [Concomitant]
     Active Substance: AZACITIDINE
     Dosage: UNK
  7. RUXOLITINIB [Concomitant]
     Active Substance: RUXOLITINIB
     Dosage: UNK
  8. VENETOCLAX. [Concomitant]
     Active Substance: VENETOCLAX
     Dosage: UNK
  9. CYTARABINE. [Concomitant]
     Active Substance: CYTARABINE

REACTIONS (4)
  - Acute lymphocytic leukaemia recurrent [Unknown]
  - Febrile neutropenia [Unknown]
  - Death [Fatal]
  - Urinary tract infection [Unknown]
